FAERS Safety Report 4455034-8 (Version None)
Quarter: 2004Q3

REPORT INFORMATION
  Report Type: 
  Country: None (occurrence: None)
  Receive Date: 20040921
  Receipt Date: 20040917
  Transmission Date: 20050211
  Serious: Yes (Death)
  Sender: FDA-Public Use
  Company Number: PHBS2004BR12314

PATIENT
  Age: 45 Year
  Sex: Male
  Weight: 115 kg

DRUGS (6)
  1. TRILEPTAL [Suspect]
     Indication: CONVULSION
     Dosage: 600 MG, TID
     Route: 048
     Dates: start: 19990101
  2. GARDENAL [Concomitant]
     Indication: CONVULSION
     Dosage: 1 TABLET/D
     Route: 048
  3. NEOMYCIN SULFATE [Concomitant]
     Indication: HEPATITIS C
     Dosage: 100 MG/D
     Route: 048
  4. ZURCAL [Concomitant]
     Indication: MALAISE
     Route: 048
  5. ALDACTONE [Concomitant]
     Route: 048
  6. TEGRETOL [Concomitant]
     Indication: CONVULSION
     Route: 065

REACTIONS (6)
  - HEPATITIS C [None]
  - LIVER DISORDER [None]
  - MULTI-ORGAN FAILURE [None]
  - PERITONITIS [None]
  - SEPSIS [None]
  - SEPTIC SHOCK [None]
